FAERS Safety Report 14119943 (Version 4)
Quarter: 2017Q4

REPORT INFORMATION
  Report Type: Report from Study
  Country: CA (occurrence: CA)
  Receive Date: 20171024
  Receipt Date: 20171108
  Transmission Date: 20180321
  Serious: Yes (Hospitalization, Other)
  Sender: FDA-Public Use
  Company Number: CA-GLAXOSMITHKLINE-CA2017GSK159692

PATIENT
  Sex: Male

DRUGS (1)
  1. MEPOLIZUMAB [Suspect]
     Active Substance: MEPOLIZUMAB
     Indication: ASTHMA
     Dosage: 100 MG, MONTHLY
     Route: 042
     Dates: start: 20161107

REACTIONS (6)
  - Pneumonia [Recovering/Resolving]
  - Cardiac arrest [Recovering/Resolving]
  - Drug dose omission [Unknown]
  - Acute myocardial infarction [Unknown]
  - Stent placement [Unknown]
  - Angina pectoris [Unknown]
